FAERS Safety Report 7887761-4 (Version None)
Quarter: 2011Q4

REPORT INFORMATION
  Report Type: 
  Country: None (occurrence: None)
  Receive Date: 20111101
  Receipt Date: 20111017
  Transmission Date: 20120403
  Serious: Yes (Other)
  Sender: FDA-Public Use
  Company Number: 11-648

PATIENT
  Age: 91 Year
  Sex: Male
  Weight: 79 kg

DRUGS (2)
  1. DUTASTERIDE [Concomitant]
  2. ALEVE [Suspect]
     Indication: PAIN
     Dosage: 2 DF / QD / ORAL
     Route: 048
     Dates: start: 20111011

REACTIONS (3)
  - FEELING HOT [None]
  - THROMBOSIS [None]
  - PAIN IN EXTREMITY [None]
